FAERS Safety Report 9402328 (Version 2)
Quarter: 2013Q3

REPORT INFORMATION
  Report Type: Spontaneous
  Country: BR (occurrence: BR)
  Receive Date: 20130716
  Receipt Date: 20130725
  Transmission Date: 20140515
  Serious: Yes (Other)
  Sender: FDA-Public Use
  Company Number: BR-PFIZER INC-2013206243

PATIENT
  Sex: Male

DRUGS (2)
  1. LIPITOR [Suspect]
     Indication: BLOOD CHOLESTEROL INCREASED
     Dosage: UNK
     Route: 048
     Dates: start: 20130523, end: 20130717
  2. FINASTERIDE [Concomitant]

REACTIONS (5)
  - Haematochezia [Recovered/Resolved]
  - Poisoning [Not Recovered/Not Resolved]
  - Faeces discoloured [Unknown]
  - Pruritus [Unknown]
  - Local swelling [Unknown]
